FAERS Safety Report 14242067 (Version 4)
Quarter: 2018Q1

REPORT INFORMATION
  Report Type: Report from Study
  Country: US (occurrence: US)
  Receive Date: 20171201
  Receipt Date: 20180309
  Transmission Date: 20180508
  Serious: Yes (Other)
  Sender: FDA-Public Use
  Company Number: US-TEVA-2017-US-826805

PATIENT
  Age: 60 Year
  Sex: Male

DRUGS (2)
  1. CLOZAPINE. [Suspect]
     Active Substance: CLOZAPINE
     Dosage: DRUG: GENERIC EQUIVALENTS: CLOZAPINE ORALLY DISINTEGRATING TABLETS
     Route: 048
  2. CLOZAPINE. [Suspect]
     Active Substance: CLOZAPINE
     Route: 048

REACTIONS (3)
  - Granulocytopenia [Unknown]
  - Lung neoplasm malignant [Unknown]
  - Agranulocytosis [Unknown]

NARRATIVE: CASE EVENT DATE: 20171114
